FAERS Safety Report 10101406 (Version 1)
Quarter: 2014Q2

REPORT INFORMATION
  Report Type: Spontaneous
  Country: US (occurrence: None)
  Receive Date: 20140423
  Receipt Date: 20140423
  Transmission Date: 20141212
  Serious: Yes (Other)
  Sender: FDA-Public Use
  Company Number: None

PATIENT
  Age: 47 Year
  Sex: Female

DRUGS (2)
  1. DULOXETINE HCL [Suspect]
     Indication: DEPRESSION
     Dosage: 1, ONCE DAILY, TAKEN BY MOUTH
     Dates: start: 20140221, end: 20140401
  2. DULOXETINE HCL [Suspect]
     Dosage: 1, ONCE DAILY, TAKEN BY MOUTH
     Dates: start: 20140221, end: 20140401

REACTIONS (10)
  - Product substitution issue [None]
  - Sunburn [None]
  - Pruritus [None]
  - Dry skin [None]
  - Skin fissures [None]
  - Skin exfoliation [None]
  - Fatigue [None]
  - Mood swings [None]
  - Swelling face [None]
  - Eye swelling [None]
